FAERS Safety Report 14447856 (Version 10)
Quarter: 2024Q2

REPORT INFORMATION
  Report Type: Spontaneous
  Country: FR (occurrence: FR)
  Receive Date: 20180126
  Receipt Date: 20240513
  Transmission Date: 20240715
  Serious: Yes (Life-Threatening, Hospitalization, Other)
  Sender: FDA-Public Use
  Company Number: FR-TAKEDA-2018TEU000706

PATIENT
  Age: 62 Year
  Sex: Male

DRUGS (36)
  1. CETIRIZINE HYDROCHLORIDE [Suspect]
     Active Substance: CETIRIZINE HYDROCHLORIDE
     Dosage: UNK
  2. VERAPAMIL HYDROCHLORIDE [Suspect]
     Active Substance: VERAPAMIL HYDROCHLORIDE
     Indication: Hypertension
     Dosage: UNK
  3. PANTOPRAZOLE [Suspect]
     Active Substance: PANTOPRAZOLE
     Dosage: UNK
  4. CYAMEMAZINE [Suspect]
     Active Substance: CYAMEMAZINE
     Indication: Agitation
     Dosage: UNK
  5. MIDAZOLAM [Suspect]
     Active Substance: MIDAZOLAM
     Indication: Sedation
     Dosage: UNK
  6. CLONAZEPAM [Suspect]
     Active Substance: CLONAZEPAM
     Dosage: UNK
  7. ALPRAZOLAM [Suspect]
     Active Substance: ALPRAZOLAM
     Dosage: UNK
  8. ALPRAZOLAM [Suspect]
     Active Substance: ALPRAZOLAM
  9. BROMAZEPAM [Suspect]
     Active Substance: BROMAZEPAM
     Dosage: UNK
  10. OXAZEPAM [Suspect]
     Active Substance: OXAZEPAM
     Dosage: UNK
  11. ZOLPIDEM TARTRATE [Suspect]
     Active Substance: ZOLPIDEM TARTRATE
     Indication: Insomnia
     Dosage: UNK
  12. ZOLPIDEM TARTRATE [Suspect]
     Active Substance: ZOLPIDEM TARTRATE
  13. AMITRIPTYLINE HYDROCHLORIDE [Suspect]
     Active Substance: AMITRIPTYLINE HYDROCHLORIDE
     Dosage: UNK
  14. VENLAFAXINE HYDROCHLORIDE [Suspect]
     Active Substance: VENLAFAXINE HYDROCHLORIDE
     Dosage: UNK
  15. VENLAFAXINE HYDROCHLORIDE [Suspect]
     Active Substance: VENLAFAXINE HYDROCHLORIDE
  16. ACETAMINOPHEN [Suspect]
     Active Substance: ACETAMINOPHEN
     Indication: Product used for unknown indication
     Dosage: DOSE DESCRIPTION : UNK
  17. ACETAMINOPHEN [Suspect]
     Active Substance: ACETAMINOPHEN
  18. HEPARIN [Suspect]
     Active Substance: HEPARIN SODIUM
     Dosage: UNK
  19. PREDNISOLONE [Suspect]
     Active Substance: PREDNISOLONE
     Dosage: UNK
  20. HYDROXYZINE [Suspect]
     Active Substance: HYDROXYZINE HYDROCHLORIDE
     Dosage: 1 DF, HS
  21. HYDROXYZINE [Suspect]
     Active Substance: HYDROXYZINE HYDROCHLORIDE
  22. SUFENTANIL [Suspect]
     Active Substance: SUFENTANIL
     Dosage: UNK
  23. NORDAZEPAM [Suspect]
     Active Substance: NORDAZEPAM
     Dosage: UNK
  24. HALOPERIDOL [Suspect]
     Active Substance: HALOPERIDOL
     Dosage: UNK
  25. URAPIDIL [Suspect]
     Active Substance: URAPIDIL
     Dosage: UNK
  26. HYDROCHLORIC ACID [Suspect]
     Active Substance: HYDROCHLORIC ACID
     Dosage: UNK
  27. CISATRACURIUM BESYLATE [Suspect]
     Active Substance: CISATRACURIUM BESYLATE
     Dosage: UNK
  28. VANCOMYCIN [Concomitant]
     Active Substance: VANCOMYCIN
     Indication: Product used for unknown indication
     Dosage: UNK
  29. VANCOMYCIN [Concomitant]
     Active Substance: VANCOMYCIN
  30. VANCOMYCIN [Concomitant]
     Active Substance: VANCOMYCIN
  31. AMIKACIN [Concomitant]
     Active Substance: AMIKACIN
     Indication: Product used for unknown indication
  32. AMIKACIN [Concomitant]
     Active Substance: AMIKACIN
  33. AMIKACIN [Concomitant]
     Active Substance: AMIKACIN
  34. PIPERACILLIN SODIUM\TAZOBACTAM SODIUM [Concomitant]
     Active Substance: PIPERACILLIN SODIUM\TAZOBACTAM SODIUM
     Indication: Product used for unknown indication
     Dosage: UNK
  35. PIPERACILLIN SODIUM\TAZOBACTAM SODIUM [Concomitant]
     Active Substance: PIPERACILLIN SODIUM\TAZOBACTAM SODIUM
  36. NOREPINEPHRINE BITARTRATE [Concomitant]
     Active Substance: NOREPINEPHRINE BITARTRATE

REACTIONS (12)
  - Coma [Recovering/Resolving]
  - Toxicity to various agents [Recovering/Resolving]
  - Overdose [Recovering/Resolving]
  - Weight fluctuation [Recovering/Resolving]
  - Nervous system disorder [Recovered/Resolved]
  - Disturbance in attention [Recovering/Resolving]
  - Altered state of consciousness [Recovering/Resolving]
  - Acute respiratory distress syndrome [Recovering/Resolving]
  - Lung disorder [Recovering/Resolving]
  - Tachycardia [Unknown]
  - Septic shock [Recovering/Resolving]
  - Hyperthermia [Unknown]
